FAERS Safety Report 8387816-4 (Version None)
Quarter: 2012Q2

REPORT INFORMATION
  Report Type: 
  Country: None (occurrence: None)
  Receive Date: 20120525
  Receipt Date: 20120412
  Transmission Date: 20120825
  Serious: No
  Sender: FDA-Public Use
  Company Number: US-BRISTOL-MYERS SQUIBB COMPANY-16518177

PATIENT
  Age: 56 Year
  Sex: Female
  Weight: 136 kg

DRUGS (1)
  1. KOMBIGLYZE XR [Suspect]
     Indication: TYPE 2 DIABETES MELLITUS
     Dosage: 1 DF = 2.5/1000 MG
     Dates: start: 20120406, end: 20120411

REACTIONS (3)
  - PRODUCT LOT NUMBER ISSUE [None]
  - PRURITUS [None]
  - RASH MACULAR [None]
